FAERS Safety Report 4932160-8 (Version None)
Quarter: 2006Q1

REPORT INFORMATION
  Report Type: 
  Country: None (occurrence: None)
  Receive Date: 20060303
  Receipt Date: 20060222
  Transmission Date: 20060701
  Serious: Yes (Hospitalization)
  Sender: FDA-Public Use
  Company Number: FR-ROCHE-437734

PATIENT
  Age: 53 Year
  Sex: Female

DRUGS (2)
  1. XELODA [Suspect]
     Indication: BREAST CANCER
     Dosage: 1950 MG MORNING AND 1950 MG EVENING
     Route: 048
     Dates: start: 20051214, end: 20060216
  2. NAVELBINE [Concomitant]

REACTIONS (5)
  - ASCITES [None]
  - ASTHENIA [None]
  - BALANCE DISORDER [None]
  - DRUG THERAPY [None]
  - VERTIGO [None]
